FAERS Safety Report 7934476-X (Version None)
Quarter: 2011Q4

REPORT INFORMATION
  Report Type: 
  Country: None (occurrence: None)
  Receive Date: 20111122
  Receipt Date: 20111101
  Transmission Date: 20120403
  Serious: Yes (Other)
  Sender: FDA-Public Use
  Company Number: JP-GLAXOSMITHKLINE-B0760609A

PATIENT
  Sex: Female

DRUGS (1)
  1. VALTREX [Suspect]
     Indication: HERPES ZOSTER
     Dosage: 4500MG PER DAY
     Route: 048
     Dates: start: 20111025, end: 20111101

REACTIONS (2)
  - POST HERPETIC NEURALGIA [None]
  - CONVULSION [None]
